FAERS Safety Report 12384849 (Version 2)
Quarter: 2016Q2

REPORT INFORMATION
  Report Type: Spontaneous
  Country: US (occurrence: US)
  Receive Date: 20160519
  Receipt Date: 20160525
  Transmission Date: 20160815
  Serious: Yes (Other)
  Sender: FDA-Public Use
  Company Number: PHHY2016US067806

PATIENT
  Age: 47 Year
  Sex: Female

DRUGS (5)
  1. ZOLEDRONIC ACID [Suspect]
     Active Substance: ZOLEDRONIC ACID
     Indication: PAIN MANAGEMENT
     Dosage: 4 MG, Q3MO
     Route: 065
  2. PENICILLIN V [Concomitant]
     Active Substance: PENICILLIN V
     Indication: RADIOLUCENCY AROUND IMPLANT
     Dosage: UNK
     Route: 065
  3. PAMIDRONATE [Suspect]
     Active Substance: PAMIDRONATE DISODIUM
     Indication: PAIN MANAGEMENT
     Dosage: 180 MG, Q3MO
     Route: 065
  4. AMITRIPTYLINE [Suspect]
     Active Substance: AMITRIPTYLINE
     Indication: FIBROUS DYSPLASIA OF BONE
     Route: 065
  5. AMITRIPTYLINE [Suspect]
     Active Substance: AMITRIPTYLINE
     Indication: BONE PAIN

REACTIONS (10)
  - Erythema [Unknown]
  - Exposed bone in jaw [Unknown]
  - Temperature intolerance [Unknown]
  - Swelling [Unknown]
  - Product use issue [Unknown]
  - Fistula [Unknown]
  - Pain [Unknown]
  - Impaired healing [Recovering/Resolving]
  - Drug ineffective [Unknown]
  - Osteonecrosis of jaw [Not Recovered/Not Resolved]
